FAERS Safety Report 5294363-5 (Version None)
Quarter: 2007Q2

REPORT INFORMATION
  Report Type: 
  Country: None (occurrence: None)
  Receive Date: 20070409
  Receipt Date: 20070409
  Transmission Date: 20071010
  Serious: Yes (Hospitalization)
  Sender: FDA-Public Use
  Company Number: None

PATIENT
  Age: 44 Year
  Sex: Female
  Weight: 70.7611 kg

DRUGS (1)
  1. LEVAQUIN [Suspect]
     Indication: CHILLBLAINS
     Dosage: ONE PILL ONCE A DAY PO
     Route: 048
     Dates: start: 20070330, end: 20070406

REACTIONS (8)
  - BEDRIDDEN [None]
  - CARDIAC DISORDER [None]
  - HEADACHE [None]
  - INSOMNIA [None]
  - MALAISE [None]
  - NAUSEA [None]
  - RESPIRATORY RATE DECREASED [None]
  - VOMITING [None]
